FAERS Safety Report 21512969 (Version 1)
Quarter: 2022Q4

REPORT INFORMATION
  Report Type: Spontaneous
  Country: US (occurrence: US)
  Receive Date: 20221027
  Receipt Date: 20221027
  Transmission Date: 20230113
  Serious: Yes (Other)
  Sender: FDA-Public Use
  Company Number: US-drreddys-LIT/USA/22/0156312

PATIENT
  Age: 39 Year

DRUGS (1)
  1. DAPTOMYCIN [Suspect]
     Active Substance: DAPTOMYCIN
     Indication: End stage renal disease
     Route: 042

REACTIONS (2)
  - Rhabdomyolysis [Unknown]
  - Product use in unapproved indication [Unknown]
